FAERS Safety Report 7267620-0 (Version None)
Quarter: 2011Q1

REPORT INFORMATION
  Report Type: 
  Country: None (occurrence: None)
  Receive Date: 20110201
  Receipt Date: 20110121
  Transmission Date: 20110831
  Serious: Yes (Disabling)
  Sender: FDA-Public Use
  Company Number: JP-CELGENEUS-087-21880-11012061

PATIENT
  Sex: Male

DRUGS (11)
  1. PANTOSIN [Concomitant]
     Indication: CONSTIPATION
     Route: 048
     Dates: start: 20100917
  2. REVLIMID [Suspect]
     Indication: MULTIPLE MYELOMA
     Route: 048
     Dates: start: 20100917, end: 20101007
  3. LENADEX [Suspect]
     Indication: MULTIPLE MYELOMA
     Route: 048
     Dates: start: 20100917, end: 20100920
  4. NORVASC [Concomitant]
     Indication: HYPERTENSION
     Route: 048
     Dates: start: 20100917
  5. GASTER D [Concomitant]
     Indication: PROPHYLAXIS
     Route: 048
     Dates: start: 20100917
  6. MAGLAX [Concomitant]
     Indication: CONSTIPATION
     Route: 048
     Dates: start: 20100917
  7. PURSENNID [Concomitant]
     Indication: CONSTIPATION
     Route: 048
     Dates: start: 20100917
  8. TEGRETOL [Concomitant]
     Route: 048
     Dates: start: 20100917
  9. LENADEX [Suspect]
     Route: 048
     Dates: start: 20101001, end: 20101001
  10. BAKTAR [Concomitant]
     Indication: PROPHYLAXIS
     Route: 048
     Dates: start: 20100917
  11. LENADEX [Suspect]
     Route: 048
     Dates: start: 20100925, end: 20100928

REACTIONS (1)
  - RETINAL VEIN OCCLUSION [None]
